FAERS Safety Report 25703851 (Version 2)
Quarter: 2025Q4

REPORT INFORMATION
  Report Type: Report from Study
  Country: CA (occurrence: CA)
  Receive Date: 20250820
  Receipt Date: 20251211
  Transmission Date: 20260118
  Serious: Yes (Other)
  Sender: ABBVIE
  Company Number: CA-ABBVIE-6420553

PATIENT
  Age: 83 Year
  Sex: Male

DRUGS (1)
  1. LUPRON [Suspect]
     Active Substance: LEUPROLIDE ACETATE
     Indication: Prostate cancer
     Dosage: FORM STRENGTH: 30 MILLIGRAMS
     Route: 030
     Dates: start: 20210427

REACTIONS (4)
  - Implantable defibrillator removal [Unknown]
  - Impaired healing [Not Recovered/Not Resolved]
  - Medical device removal [Unknown]
  - Device issue [Unknown]

NARRATIVE: CASE EVENT DATE: 20230101
